FAERS Safety Report 24852230 (Version 3)
Quarter: 2025Q1

REPORT INFORMATION
  Report Type: Spontaneous
  Country: US (occurrence: US)
  Receive Date: 20250116
  Receipt Date: 20250203
  Transmission Date: 20250409
  Serious: No
  Sender: SANOFI AVENTIS
  Company Number: US-SA-2025SA012957

PATIENT
  Age: 63 Year
  Sex: Female
  Weight: 91.36 kg

DRUGS (1)
  1. DUPIXENT [Suspect]
     Active Substance: DUPILUMAB
     Indication: Asthma
     Dosage: 300 MG, QOW
     Route: 058
     Dates: end: 20241128

REACTIONS (9)
  - Cough [Unknown]
  - Pruritus [Unknown]
  - Sleep disorder due to a general medical condition [Unknown]
  - Myalgia [Unknown]
  - Dry throat [Unknown]
  - Dizziness [Unknown]
  - Headache [Unknown]
  - Rash [Unknown]
  - Arthralgia [Unknown]
